FAERS Safety Report 7959065-2 (Version None)
Quarter: 2011Q4

REPORT INFORMATION
  Report Type: 
  Country: None (occurrence: None)
  Receive Date: 20111206
  Receipt Date: 20111005
  Transmission Date: 20120403
  Serious: No
  Sender: FDA-Public Use
  Company Number: US-GLAXOSMITHKLINE-A0947547A

PATIENT
  Sex: Female

DRUGS (2)
  1. LAMICTAL [Suspect]
     Indication: AFFECTIVE DISORDER
     Route: 060
     Dates: start: 20110101
  2. NO CONCURRENT MEDICATION [Concomitant]

REACTIONS (1)
  - MEMORY IMPAIRMENT [None]
